FAERS Safety Report 24952864 (Version 1)
Quarter: 2025Q1

REPORT INFORMATION
  Report Type: Spontaneous
  Country: HK (occurrence: HK)
  Receive Date: 20250211
  Receipt Date: 20250211
  Transmission Date: 20250409
  Serious: Yes (Hospitalization, Other)
  Sender: GLAXOSMITHKLINE
  Company Number: HK-GSK-B0335906A

PATIENT
  Age: 12 Month
  Sex: Male
  Weight: 9.2 kg

DRUGS (13)
  1. ACETAMINOPHEN [Suspect]
     Active Substance: ACETAMINOPHEN
     Indication: Upper respiratory tract infection
     Route: 054
     Dates: start: 2003
  2. ACETAMINOPHEN [Suspect]
     Active Substance: ACETAMINOPHEN
     Route: 048
  3. MINERALS\VITAMINS [Concomitant]
     Active Substance: MINERALS\VITAMINS
     Indication: Product used for unknown indication
     Route: 065
  4. CEFACLOR [Concomitant]
     Active Substance: CEFACLOR
     Indication: Upper respiratory tract infection
     Dosage: 62.5 MG, TID
  5. CEFTIBUTEN [Concomitant]
     Active Substance: CEFTIBUTEN
     Indication: Product used for unknown indication
     Route: 065
  6. CHLORPHENIRAMINE [Concomitant]
     Active Substance: CHLORPHENIRAMINE
     Indication: Product used for unknown indication
  7. PROMETHAZINE [Concomitant]
     Active Substance: PROMETHAZINE HYDROCHLORIDE
     Indication: Product used for unknown indication
  8. Pharmaton [Concomitant]
     Indication: Product used for unknown indication
  9. DOMPERIDONE [Concomitant]
     Active Substance: DOMPERIDONE
     Indication: Product used for unknown indication
     Route: 065
  10. KAOLIN [Concomitant]
     Active Substance: KAOLIN
     Indication: Product used for unknown indication
     Route: 065
  11. KAOLIN [Concomitant]
     Active Substance: KAOLIN
     Route: 065
  12. SACCHAROMYCES CEREVISIAE [Concomitant]
     Active Substance: SACCHAROMYCES CEREVISIAE
     Indication: Product used for unknown indication
     Route: 065
  13. CHLORPHENIRAMINE/DEXTROMETHORPHAN/PHENYLEPHRI [Concomitant]
     Indication: Product used for unknown indication

REACTIONS (22)
  - Hepatotoxicity [Recovered/Resolved]
  - Overdose [Recovered/Resolved]
  - Thrombocytopenia [Unknown]
  - Disseminated intravascular coagulation [Recovered/Resolved]
  - Metabolic acidosis [Unknown]
  - Hypoglycaemia [Unknown]
  - Shock [Unknown]
  - Vomiting [Unknown]
  - Diarrhoea [Unknown]
  - Mucous stools [Unknown]
  - Pyrexia [Unknown]
  - Lethargy [Unknown]
  - Hypotension [Unknown]
  - Haematemesis [Unknown]
  - Haematuria [Unknown]
  - Abdominal distension [Recovered/Resolved]
  - Proteinuria [Recovered/Resolved]
  - Renal tubular dysfunction [Recovered/Resolved]
  - Renal failure [Unknown]
  - Ileus paralytic [Recovered/Resolved]
  - Renal impairment [Recovered/Resolved with Sequelae]
  - Rhabdomyolysis [Recovered/Resolved]
